FAERS Safety Report 9781899 (Version 2)
Quarter: 2014Q1

REPORT INFORMATION
  Report Type: Spontaneous
  Country: US (occurrence: US)
  Receive Date: 20131225
  Receipt Date: 20140113
  Transmission Date: 20141002
  Serious: No
  Sender: FDA-Public Use
  Company Number: US-009507513-1312USA011094

PATIENT
  Sex: 0

DRUGS (2)
  1. JANUMET XR [Suspect]
     Dosage: ONCE DAILY
     Route: 048
  2. JANUMET [Suspect]
     Dosage: TWICE DAILY
     Route: 048

REACTIONS (1)
  - Diarrhoea [Unknown]
